FAERS Safety Report 9307926 (Version 3)
Quarter: 2013Q3

REPORT INFORMATION
  Report Type: Spontaneous
  Country: JP (occurrence: JP)
  Receive Date: 20130524
  Receipt Date: 20130718
  Transmission Date: 20140515
  Serious: Yes (Hospitalization)
  Sender: FDA-Public Use
  Company Number: JP-OTSUKA-JP-2013-11647

PATIENT
  Age: 70 Year
  Sex: Male
  Weight: 60.2 kg

DRUGS (16)
  1. SAMSCA [Suspect]
     Indication: CARDIAC FAILURE
     Dosage: 7.5 MG MILLIGRAM(S), QD
     Route: 048
     Dates: start: 20130509, end: 20130513
  2. HANP [Concomitant]
     Indication: CARDIAC FAILURE
     Dosage: 1000 MCG, BID
     Route: 041
     Dates: start: 20130508, end: 20130510
  3. LASIX [Concomitant]
     Indication: CARDIAC FAILURE
     Dosage: 20 MG MILLIGRAM(S), QD
     Route: 042
     Dates: start: 20130508, end: 20130510
  4. NITOROL [Concomitant]
     Indication: CARDIAC FAILURE
     Dosage: 25 MG MILLIGRAM(S), QD
     Route: 042
     Dates: start: 20130508, end: 20130510
  5. NOVO HEPARIN [Concomitant]
     Indication: CARDIAC FAILURE
     Dosage: 5 KIU IU(1000S), TID
     Route: 041
     Dates: start: 20130508, end: 20130512
  6. NOVO HEPARIN [Concomitant]
     Indication: ATRIAL FIBRILLATION
  7. SOLITA-T3 [Concomitant]
     Indication: FLUID REPLACEMENT
     Dosage: 500 ML MILLILITRE(S), QD
     Route: 042
     Dates: start: 20130508, end: 20130513
  8. LECICARBON [Concomitant]
     Indication: CONSTIPATION
     Dosage: 2.6 G GRAM(S), PRN
     Route: 054
     Dates: start: 20130508
  9. MYSLEE [Concomitant]
     Indication: INSOMNIA
     Dosage: 5 MG MILLIGRAM(S), PRN
     Route: 048
     Dates: start: 20130508
  10. VASOLAN [Concomitant]
     Dosage: 40 MG MILLIGRAM(S), BID
     Route: 048
     Dates: start: 20130508
  11. ALDACTONE A [Concomitant]
     Indication: CARDIAC FAILURE
     Dosage: 25 MG MILLIGRAM(S), QD
     Route: 048
     Dates: start: 20130508
  12. NEXIUM [Concomitant]
     Indication: PROPHYLAXIS AGAINST GASTROINTESTINAL ULCER
     Dosage: 20 MG MILLIGRAM(S), QD
     Route: 048
     Dates: start: 20130508
  13. CEFTRIAXONE SODIUM [Concomitant]
     Indication: PNEUMONIA
     Dosage: 1 G GRAM(S), QD
     Route: 042
     Dates: start: 20130510, end: 20130513
  14. RENIVACE [Concomitant]
     Indication: CARDIAC FAILURE
     Dosage: 2.5 MG MILLIGRAM(S), QD
     Route: 048
     Dates: start: 20130510
  15. WARFARIN K [Concomitant]
     Indication: ATRIAL FIBRILLATION
     Dosage: 1 MG MILLIGRAM(S), TID
     Route: 048
     Dates: start: 20130510
  16. WARFARIN K [Concomitant]
     Indication: CEREBRAL INFARCTION

REACTIONS (1)
  - Cerebral infarction [Unknown]
